FAERS Safety Report 14119396 (Version 1)
Quarter: 2017Q4

REPORT INFORMATION
  Report Type: Spontaneous
  Country: US (occurrence: US)
  Receive Date: 20171024
  Receipt Date: 20171024
  Transmission Date: 20180321
  Serious: No
  Sender: FDA-Public Use
  Company Number: US-PFIZER INC-2017455165

PATIENT
  Age: 64 Year
  Sex: Female
  Weight: 105.6 kg

DRUGS (1)
  1. IBRANCE [Suspect]
     Active Substance: PALBOCICLIB
     Indication: BREAST CANCER
     Dosage: 125 MG, CYCLIC [D1-D21, Q28 D]
     Route: 048
     Dates: start: 20171011

REACTIONS (5)
  - Musculoskeletal chest pain [Unknown]
  - Muscle spasms [Unknown]
  - Neuropathy peripheral [Unknown]
  - Lacrimation increased [Unknown]
  - Diplopia [Unknown]
